FAERS Safety Report 8488134-6 (Version None)
Quarter: 2012Q3

REPORT INFORMATION
  Report Type: 
  Country: None (occurrence: None)
  Receive Date: 20120705
  Receipt Date: 20120702
  Transmission Date: 20120928
  Serious: Yes (Death, Hospitalization)
  Sender: FDA-Public Use
  Company Number: PHHY2012JP057152

PATIENT
  Sex: Male
  Weight: 55 kg

DRUGS (39)
  1. LOXONIN [Concomitant]
     Dosage: 180 MG
     Route: 048
     Dates: start: 20110214, end: 20110306
  2. RED BLOOD CELLS, CONCENTRATED [Concomitant]
     Dosage: 2 U, EVERY WEEK
     Dates: start: 20081008, end: 20081103
  3. EXJADE [Suspect]
     Dosage: 500 MG, DAILY
     Route: 048
     Dates: start: 20090225, end: 20090324
  4. PREDNISOLONE SODIUM SUCCINATE INJ [Concomitant]
     Dosage: 25 MG
     Route: 048
  5. ALLOPURINOL [Concomitant]
     Dosage: 200 MG
     Route: 048
     Dates: start: 20110411
  6. PLATELETS [Concomitant]
     Dosage: 10 U, EVERY 4 WEEKS
     Dates: start: 20110301
  7. PREDNISOLONE SODIUM SUCCINATE INJ [Concomitant]
     Dosage: 7.5 MG
     Route: 048
  8. RED BLOOD CELLS, CONCENTRATED [Concomitant]
     Dosage: 2 UNITS EVERY 4 WEEKS
     Dates: start: 20090223, end: 20090420
  9. PREDNISOLONE SODIUM SUCCINATE INJ [Concomitant]
     Indication: MYELODYSPLASTIC SYNDROME
     Dosage: 30 MG
     Route: 048
     Dates: start: 20091007
  10. PREDNISOLONE SODIUM SUCCINATE INJ [Concomitant]
     Dosage: 12.5 MG
     Route: 048
  11. PROCHLORPERAZINE [Concomitant]
     Dosage: 15 MG
     Dates: start: 20110411
  12. RED BLOOD CELLS, CONCENTRATED [Concomitant]
     Dosage: 2 UNITS EVERY 2 WEEKS
     Dates: start: 20081104, end: 20090223
  13. EXJADE [Suspect]
     Dosage: 1000 MG, DAILY
     Route: 048
     Dates: start: 20081022, end: 20090224
  14. EXJADE [Suspect]
     Dosage: 500 MG, DAILY
     Route: 048
     Dates: start: 20090520, end: 20100518
  15. VOLTAREN-XR [Concomitant]
     Dosage: 75 MG
     Route: 048
     Dates: start: 20110307, end: 20110417
  16. LASIX [Concomitant]
     Dosage: 20 MG
     Dates: start: 20081008
  17. RED BLOOD CELLS, CONCENTRATED [Concomitant]
     Dosage: 2 UNITS EVERY 4 WEEKS
     Dates: start: 20091006
  18. FRESH FROZEN PLASMA [Concomitant]
     Dosage: 12 U, EVERY 4 WEEKS
     Dates: start: 20110601
  19. EXJADE [Suspect]
     Dosage: 1000 MG, DAILY
     Route: 048
     Dates: start: 20090325, end: 20090519
  20. EXJADE [Suspect]
     Dosage: 1000 MG, DAILY
     Route: 048
     Dates: start: 20110315, end: 20110620
  21. LASIX [Concomitant]
     Dosage: 20 MG
     Route: 048
  22. PREDNISOLONE SODIUM SUCCINATE INJ [Concomitant]
     Dosage: 10 MG
     Route: 048
  23. HYDREA [Concomitant]
     Indication: MYELODYSPLASTIC SYNDROME
     Dosage: 1000 MG
     Route: 048
     Dates: start: 20110411
  24. RED BLOOD CELLS, CONCENTRATED [Concomitant]
     Dosage: 8 UNITS EVERY 4 WEEKS
     Dates: start: 20101001, end: 20101101
  25. EXJADE [Suspect]
     Indication: IRON OVERLOAD
     Dosage: 500 MG, DAILY
     Route: 048
     Dates: start: 20081009, end: 20081021
  26. EXJADE [Suspect]
     Dosage: 1500 MG, DAILY
     Route: 048
     Dates: start: 20110621
  27. PREDNISOLONE SODIUM SUCCINATE INJ [Concomitant]
     Dosage: 20 MG
     Route: 048
  28. LANSOPRAZOLE [Concomitant]
     Dosage: 30 MG
     Route: 048
     Dates: start: 20091007
  29. RED BLOOD CELLS, CONCENTRATED [Concomitant]
     Dosage: 2 UNITS EVERY 4 WEEKS
     Dates: start: 20101001, end: 20101101
  30. PLATELETS [Concomitant]
     Dosage: 170 U, EVERY 4 WEEKS
     Dates: start: 20110401, end: 20110501
  31. PLATELETS [Concomitant]
     Dosage: 100 U, EVERY 4 WEEKS
     Dates: start: 20110601
  32. FRESH FROZEN PLASMA [Concomitant]
     Dosage: 30 U, EVERY 4 WEEKS
     Dates: start: 20110401
  33. PREDNISOLONE SODIUM SUCCINATE INJ [Concomitant]
     Dosage: 15 MG
     Route: 048
  34. PREDNISOLONE SODIUM SUCCINATE INJ [Concomitant]
     Dosage: 10 MG
     Route: 048
  35. SULFAMETHOXAZOLE AND TRIMETHOPRIM [Concomitant]
     Indication: PROPHYLAXIS
     Route: 048
     Dates: start: 20091201
  36. AZATHIOPRINE SODIUM [Concomitant]
     Indication: MYELODYSPLASTIC SYNDROME
     Dosage: 50 MG
     Route: 048
     Dates: start: 20101130
  37. MAGMITT KENEI [Concomitant]
     Indication: PROPHYLAXIS
     Dosage: 1980 MG
     Dates: start: 20090411
  38. RED BLOOD CELLS, CONCENTRATED [Concomitant]
     Dosage: 2 UNITS EVERY 4 WEEKS
     Dates: start: 20090519, end: 20091006
  39. PLATELETS [Concomitant]
     Dosage: 90 U, EVERY 4 WEEKS
     Dates: start: 20110601

REACTIONS (6)
  - DEATH [None]
  - MOUTH ULCERATION [None]
  - HEPATIC FUNCTION ABNORMAL [None]
  - FULL BLOOD COUNT DECREASED [None]
  - BLAST CELL COUNT INCREASED [None]
  - BLOOD LACTATE DEHYDROGENASE INCREASED [None]
